FAERS Safety Report 15752838 (Version 2)
Quarter: 2019Q1

REPORT INFORMATION
  Report Type: Spontaneous
  Country: JP (occurrence: JP)
  Receive Date: 20181221
  Receipt Date: 20190329
  Transmission Date: 20190417
  Serious: Yes (Other)
  Sender: FDA-Public Use
  Company Number: JP-GILEAD-2018-0381491

PATIENT
  Age: 5 Decade
  Sex: Male

DRUGS (7)
  1. NORVIR [Suspect]
     Active Substance: RITONAVIR
     Indication: HIV INFECTION
     Dosage: 100 MG, QD
     Route: 048
     Dates: start: 201002
  2. LENDORMIN [Concomitant]
     Active Substance: BROTIZOLAM
     Indication: HIV INFECTION
     Route: 048
     Dates: start: 201002
  3. REYATAZ [Suspect]
     Active Substance: ATAZANAVIR SULFATE
     Indication: HIV INFECTION
     Dosage: 300 MG, QD
     Route: 048
     Dates: start: 201002
  4. MUCOSTA [Concomitant]
     Active Substance: REBAMIPIDE
     Indication: HIV INFECTION
     Route: 048
     Dates: start: 201002
  5. MYSLEE [Concomitant]
     Active Substance: ZOLPIDEM TARTRATE
     Indication: HIV INFECTION
     Route: 048
     Dates: start: 201002
  6. LOXONIN [Concomitant]
     Active Substance: LOXOPROFEN SODIUM
     Indication: HIV INFECTION
     Route: 048
     Dates: start: 201002
  7. TRUVADA [Suspect]
     Active Substance: EMTRICITABINE\TENOFOVIR DISOPROXIL FUMARATE
     Indication: HIV INFECTION
     Dosage: UNK
     Route: 048
     Dates: start: 201002

REACTIONS (2)
  - Loss of consciousness [Unknown]
  - Depressive symptom [Recovered/Resolved]

NARRATIVE: CASE EVENT DATE: 201002
